FAERS Safety Report 9865566 (Version 1)
Quarter: 2014Q1

REPORT INFORMATION
  Report Type: Spontaneous
  Country: US (occurrence: US)
  Receive Date: 20140203
  Receipt Date: 20140203
  Transmission Date: 20141002
  Serious: No
  Sender: FDA-Public Use
  Company Number: US-ALLERGAN-1305616US

PATIENT
  Age: 83 Year
  Sex: Female

DRUGS (3)
  1. RESTASIS [Suspect]
     Indication: DRY EYE
     Dosage: 2 GTT, BID
     Route: 047
  2. BACLOFEN [Concomitant]
     Indication: MUSCLE SPASMS
     Dosage: 10 MG, QPM
     Route: 048
     Dates: start: 20130401
  3. SYSTANE BALANCE [Concomitant]
     Indication: DRY EYE
     Dosage: UNK, PRN
     Route: 047

REACTIONS (3)
  - Instillation site pain [Unknown]
  - Eye irritation [Unknown]
  - Eyelid oedema [Unknown]
